FAERS Safety Report 8817196 (Version 2)
Quarter: 2012Q4

REPORT INFORMATION
  Report Type: 
  Country: US (occurrence: US)
  Receive Date: 20121004
  Receipt Date: 20121119
  Transmission Date: 20130627
  Serious: Yes (Other)
  Sender: FDA-Public Use
  Company Number: US-TEVA-362087USA

PATIENT
  Sex: Male

DRUGS (2)
  1. RIBAVIRIN [Suspect]
  2. INCIVEK [Suspect]

REACTIONS (2)
  - Hepatitis C [Unknown]
  - Hypotension [Recovered/Resolved]
